FAERS Safety Report 9931796 (Version 1)
Quarter: 2014Q1

REPORT INFORMATION
  Report Type: Spontaneous
  Country: US (occurrence: None)
  Receive Date: 20140224
  Receipt Date: 20140224
  Transmission Date: 20141002
  Serious: Yes (Other)
  Sender: FDA-Public Use
  Company Number: QR78097-01

PATIENT
  Age: 67 Year
  Sex: Female

DRUGS (1)
  1. GAMMAPLEX IMMUNE [Suspect]
     Indication: CHRONIC INFLAMMATORY DEMYELINATING POLYRADICULONEUROPATHY
     Dosage: OVER 2 DAYS
     Route: 042

REACTIONS (1)
  - Dental caries [None]
